FAERS Safety Report 23928775 (Version 1)
Quarter: 2024Q2

REPORT INFORMATION
  Report Type: Spontaneous
  Country: US (occurrence: US)
  Receive Date: 20240531
  Receipt Date: 20240531
  Transmission Date: 20240716
  Serious: No
  Sender: FDA-Public Use
  Company Number: US-RADIUS HEALTH INC.-2024US001182

PATIENT
  Sex: Female

DRUGS (2)
  1. TYMLOS [Suspect]
     Active Substance: ABALOPARATIDE
     Indication: Product used for unknown indication
     Dosage: UNK
     Dates: end: 202403
  2. TYMLOS [Suspect]
     Active Substance: ABALOPARATIDE
     Dosage: HALF DOSE
     Route: 065

REACTIONS (5)
  - Migraine [Unknown]
  - Tinnitus [Unknown]
  - Immature granulocyte count increased [Unknown]
  - Intentional product misuse [Not Recovered/Not Resolved]
  - Headache [Unknown]
